FAERS Safety Report 5724184-8 (Version None)
Quarter: 2008Q2

REPORT INFORMATION
  Report Type: 
  Country: None (occurrence: None)
  Receive Date: 20080430
  Receipt Date: 20080422
  Transmission Date: 20081010
  Serious: Yes (Other)
  Sender: FDA-Public Use
  Company Number: US-GENENTECH-259859

PATIENT
  Age: 63 Year
  Sex: Male

DRUGS (4)
  1. AVASTIN [Suspect]
     Indication: NON-SMALL CELL LUNG CANCER
     Dosage: 15 MG/KG, UNK
     Route: 042
  2. AVASTIN [Suspect]
     Dosage: 15 MG/KG, UNK
     Dates: start: 20080418
  3. GEMCITABINE [Concomitant]
     Indication: NON-SMALL CELL LUNG CANCER
  4. CARBOPLATIN [Concomitant]
     Indication: NON-SMALL CELL LUNG CANCER

REACTIONS (3)
  - CONFUSIONAL STATE [None]
  - MEDICATION ERROR [None]
  - PLATELET COUNT DECREASED [None]
